FAERS Safety Report 6032949-0 (Version None)
Quarter: 2009Q1

REPORT INFORMATION
  Report Type: 
  Country: None (occurrence: None)
  Receive Date: 20090109
  Receipt Date: 20090105
  Transmission Date: 20090719
  Serious: Yes (Congenital Anomaly)
  Sender: FDA-Public Use
  Company Number: A0680200A

PATIENT
  Sex: Female

DRUGS (19)
  1. PAXIL [Suspect]
     Indication: POST-TRAUMATIC STRESS DISORDER
     Dosage: 40MG PER DAY
     Dates: start: 19990101, end: 20070101
  2. PAXIL CR [Suspect]
     Indication: POST-TRAUMATIC STRESS DISORDER
     Dates: start: 19960101, end: 20070101
  3. VITAMIN TAB [Concomitant]
  4. AUGMENTIN '125' [Concomitant]
     Dates: start: 20030201
  5. PYRIDIUM [Concomitant]
     Dates: start: 20030201
  6. EFFEXOR [Concomitant]
  7. FIORICET [Concomitant]
  8. ALBUTEROL [Concomitant]
  9. AZMACORT [Concomitant]
  10. ZITHROMAX [Concomitant]
  11. VITAMIN TAB [Concomitant]
  12. VISTARIL [Concomitant]
  13. TYLENOL (CAPLET) [Concomitant]
  14. ALPRAZOLAM [Concomitant]
  15. SEROQUEL [Concomitant]
     Dates: start: 20020801
  16. OLANZAPINE [Concomitant]
     Dates: start: 20021009, end: 20021101
  17. GEODON [Concomitant]
     Dates: start: 20021104, end: 20021101
  18. BUSPAR [Concomitant]
     Dates: start: 20021004
  19. KLONOPIN [Concomitant]
     Dates: start: 20021121

REACTIONS (17)
  - ABDOMINAL PAIN [None]
  - ATRIAL SEPTAL DEFECT [None]
  - BACK PAIN [None]
  - CARDIAC DISORDER [None]
  - CARDIOMEGALY [None]
  - CEREBRAL PALSY [None]
  - DEVELOPMENTAL DELAY [None]
  - DRUG EXPOSURE DURING PREGNANCY [None]
  - FOOT DEFORMITY [None]
  - GAIT DISTURBANCE [None]
  - HYPERREFLEXIA [None]
  - PATENT DUCTUS ARTERIOSUS [None]
  - PERONEAL NERVE PALSY [None]
  - PERSISTENT FOETAL CIRCULATION [None]
  - TALIPES [None]
  - TENDINOUS CONTRACTURE [None]
  - VENTRICULAR SEPTAL DEFECT [None]
